FAERS Safety Report 5455232-0 (Version None)
Quarter: 2007Q3

REPORT INFORMATION
  Report Type: 
  Country: None (occurrence: None)
  Receive Date: 20070918
  Receipt Date: 20070907
  Transmission Date: 20080115
  Serious: Yes (Other)
  Sender: FDA-Public Use
  Company Number: PHEH2007US12127

PATIENT
  Sex: Female

DRUGS (2)
  1. METOPROLOL TARTRATE [Suspect]
     Dosage: 100MG UNK
  2. NORVASC [Concomitant]
     Dosage: 10MG

REACTIONS (2)
  - CEREBROVASCULAR ACCIDENT [None]
  - HYPERTENSION [None]
